FAERS Safety Report 11109023 (Version 1)
Quarter: 2015Q2

REPORT INFORMATION
  Report Type: Spontaneous
  Country: US (occurrence: US)
  Receive Date: 20150513
  Receipt Date: 20150513
  Transmission Date: 20150821
  Serious: No
  Sender: FDA-Public Use
  Company Number: US-BIOGENIDEC-2015BI062325

PATIENT
  Age: 58 Year
  Sex: Female

DRUGS (3)
  1. AVONEX [Suspect]
     Active Substance: INTERFERON BETA-1A
     Indication: MULTIPLE SCLEROSIS
     Route: 030
     Dates: start: 20050729
  2. AVONEX [Suspect]
     Active Substance: INTERFERON BETA-1A
     Indication: MULTIPLE SCLEROSIS
     Route: 030
     Dates: start: 19971201, end: 20040922
  3. AVONEX [Suspect]
     Active Substance: INTERFERON BETA-1A
     Indication: MULTIPLE SCLEROSIS
     Route: 030
     Dates: start: 20050729

REACTIONS (8)
  - Frustration [Recovered/Resolved]
  - Pain in extremity [Recovered/Resolved]
  - Drug dose omission [Recovered/Resolved]
  - Injury associated with device [Recovered/Resolved]
  - Haemorrhage [Recovered/Resolved]
  - Abdominal discomfort [Recovered/Resolved]
  - General symptom [Recovered/Resolved]
  - Asthenia [Recovered/Resolved]

NARRATIVE: CASE EVENT DATE: 20150429
